FAERS Safety Report 18122904 (Version 2)
Quarter: 2021Q4

REPORT INFORMATION
  Report Type: Spontaneous
  Country: DE (occurrence: DE)
  Receive Date: 20200807
  Receipt Date: 20211027
  Transmission Date: 20220303
  Serious: Yes (Hospitalization)
  Sender: FDA-Public Use
  Company Number: None

PATIENT
  Age: 30 Year
  Sex: Male

DRUGS (8)
  1. VENLAFAXINE [Suspect]
     Active Substance: VENLAFAXINE HYDROCHLORIDE
     Indication: Obsessive-compulsive disorder
     Route: 048
  2. VENLAFAXINE [Suspect]
     Active Substance: VENLAFAXINE HYDROCHLORIDE
     Indication: Apathy
     Dosage: IN CHANGING DOSES: MAX. 300 MG DAILY
     Route: 048
  3. VENLAFAXINE [Suspect]
     Active Substance: VENLAFAXINE HYDROCHLORIDE
     Dosage: IN CHANGING DOSES: MAX. 300 MG DAILY
     Route: 048
  4. VENLAFAXINE [Suspect]
     Active Substance: VENLAFAXINE HYDROCHLORIDE
     Route: 048
  5. CLOMIPRAMINE [Concomitant]
     Active Substance: CLOMIPRAMINE
     Indication: Schizophrenia
     Dosage: 150 MG/DAY
     Route: 065
  6. QUETIAPINE [Concomitant]
     Active Substance: QUETIAPINE
     Indication: Schizophrenia
     Dosage: 700 MILLIGRAM DAILY; UP TO A MAXIMUM OF 700 MG PER DAY
  7. QUETIAPINE [Concomitant]
     Active Substance: QUETIAPINE
     Dosage: 1200 MILLIGRAM DAILY;
  8. VALPROIC ACID [Concomitant]
     Active Substance: VALPROIC ACID
     Indication: Schizophrenia
     Dosage: INITIATED AT AGE 33

REACTIONS (25)
  - Dysphoria [Unknown]
  - Impulsive behaviour [Unknown]
  - Tachyphrenia [Unknown]
  - Psychomotor hyperactivity [Recovered/Resolved]
  - Drug dependence [Unknown]
  - Disturbance in attention [Unknown]
  - Drug dependence [Unknown]
  - Abnormal behaviour [Unknown]
  - Delusion of grandeur [Unknown]
  - Logorrhoea [Unknown]
  - Euphoric mood [Recovered/Resolved]
  - Dissociation [Unknown]
  - Mania [Recovered/Resolved]
  - Mania [Recovered/Resolved]
  - Agitation [Recovered/Resolved]
  - Drug withdrawal syndrome [Recovered/Resolved]
  - Withdrawal syndrome [Recovered/Resolved]
  - Mania [Recovered/Resolved]
  - Psychomotor hyperactivity [Recovering/Resolving]
  - Treatment noncompliance [Unknown]
  - Drug abuse [Unknown]
  - Intentional product misuse [Unknown]
  - Off label use [Unknown]
  - Drug abuse [Unknown]
  - Prescribed overdose [Unknown]
